FAERS Safety Report 9288097 (Version 1)
Quarter: 2013Q2

REPORT INFORMATION
  Report Type: Spontaneous
  Country: US (occurrence: US)
  Receive Date: 20130514
  Receipt Date: 20130514
  Transmission Date: 20140414
  Serious: Yes (Death)
  Sender: FDA-Public Use
  Company Number: US-ROCHE-1224052

PATIENT
  Age: 56 Year
  Sex: Male

DRUGS (6)
  1. PEGASYS [Suspect]
     Indication: CHRONIC HEPATITIS C
     Route: 058
     Dates: start: 20130306
  2. PEGASYS [Suspect]
     Indication: CHRONIC HEPATITIS C
  3. RIBASPHERE [Suspect]
     Indication: CHRONIC HEPATITIS C
     Dosage: 600/800 DAILY DIVIDED DOSES
     Route: 048
     Dates: start: 20130306
  4. RIBASPHERE [Suspect]
     Indication: CHRONIC HEPATITIS C
  5. TELAPREVIR [Suspect]
     Indication: CHRONIC HEPATITIS C
     Route: 065
     Dates: start: 20130306
  6. TELAPREVIR [Suspect]
     Indication: CHRONIC HEPATITIS C

REACTIONS (1)
  - Cardiac failure [Fatal]
